FAERS Safety Report 23265590 (Version 3)
Quarter: 2023Q4

REPORT INFORMATION
  Report Type: Report from Study
  Country: DE (occurrence: DE)
  Receive Date: 20231206
  Receipt Date: 20231219
  Transmission Date: 20240109
  Serious: Yes (Death, Hospitalization)
  Sender: FDA-Public Use
  Company Number: DE-ABBVIE-5526580

PATIENT
  Age: 83 Year
  Sex: Male

DRUGS (2)
  1. CARBIDOPA\LEVODOPA [Suspect]
     Active Substance: CARBIDOPA\LEVODOPA
     Indication: Parkinson^s disease
     Dosage: MD: 1.0 ML; CRD: 4.0 ML/H; CRN: 2.6 ML/H; ED: 1.5 ML
     Route: 050
     Dates: start: 20170206
  2. CARBIDOPA\LEVODOPA [Suspect]
     Active Substance: CARBIDOPA\LEVODOPA

REACTIONS (2)
  - Intestinal obstruction [Fatal]
  - Ileus [Fatal]

NARRATIVE: CASE EVENT DATE: 20231128
